FAERS Safety Report 7920590-1 (Version None)
Quarter: 2011Q4

REPORT INFORMATION
  Report Type: 
  Country: None (occurrence: None)
  Receive Date: 20111117
  Receipt Date: 20111114
  Transmission Date: 20120403
  Serious: Yes (Hospitalization)
  Sender: FDA-Public Use
  Company Number: PHHY2011IT94037

PATIENT
  Sex: Male

DRUGS (6)
  1. AVODART [Concomitant]
     Dosage: 0.5 MG, UNK
     Route: 048
  2. DICLOFENAC POTASSIUM [Suspect]
     Indication: ARTHRALGIA
     Dosage: 200 MG, WEEKLY
     Route: 048
     Dates: start: 20111020, end: 20111020
  3. ACETAMINOPHEN [Concomitant]
     Indication: HYPERPYREXIA
  4. GLIBOMET [Concomitant]
  5. TAMSULOSIN HCL [Concomitant]
  6. METFORMIN HCL [Concomitant]
     Indication: DIABETES MELLITUS
     Dosage: 500 MG, UNK
     Route: 048

REACTIONS (5)
  - DRUG ABUSE [None]
  - BLOOD UREA INCREASED [None]
  - HYPERCREATININAEMIA [None]
  - RENAL FAILURE ACUTE [None]
  - ATRIAL NATRIURETIC PEPTIDE INCREASED [None]
